FAERS Safety Report 4549264-4 (Version None)
Quarter: 2004Q4

REPORT INFORMATION
  Report Type: 
  Country: None (occurrence: None)
  Receive Date: 20041230
  Receipt Date: 20040527
  Transmission Date: 20050328
  Serious: Yes (Other)
  Sender: FDA-Public Use
  Company Number: 04-05-0786

PATIENT
  Age: 28 Year
  Sex: Male

DRUGS (5)
  1. CLOZAPINE [Suspect]
     Indication: SCHIZOPHRENIA
     Dosage: 300MG HS ORAL
     Route: 048
  2. RISPERDAL [Concomitant]
  3. DEPAKOTE [Concomitant]
  4. RESTORIL [Concomitant]
  5. ATIVAN [Concomitant]

REACTIONS (1)
  - NEUTROPHIL COUNT DECREASED [None]
